FAERS Safety Report 9586438 (Version 1)
Quarter: 2013Q4

REPORT INFORMATION
  Report Type: Report from Study
  Country: FR (occurrence: FR)
  Receive Date: 20131003
  Receipt Date: 20131003
  Transmission Date: 20140711
  Serious: Yes (Death)
  Sender: FDA-Public Use
  Company Number: FR-ASTELLAS-2013EU008263

PATIENT
  Age: 56 Year
  Sex: Male
  Weight: 73 kg

DRUGS (5)
  1. ENZALUTAMIDE [Suspect]
     Indication: PROSTATE CANCER
     Dosage: 160 MG, UID/QD
     Route: 048
     Dates: start: 20130702
  2. ATACAND [Concomitant]
     Indication: HYPERTENSION
     Dosage: 80 MG, BID
     Route: 048
     Dates: start: 2012
  3. METFORMIN [Concomitant]
     Indication: DIABETES MELLITUS
     Dosage: 850 MG, UID/QD
     Route: 048
     Dates: start: 2011
  4. NOVONORM [Concomitant]
     Indication: DIABETES MELLITUS
     Dosage: 2 MG, UID/QD
     Route: 048
     Dates: start: 20130413
  5. TAHOR [Concomitant]
     Indication: HYPERCHOLESTEROLAEMIA
     Dosage: 10 MG, UNKNOWN/D
     Route: 065
     Dates: start: 20130307

REACTIONS (2)
  - Malignant neoplasm progression [Fatal]
  - Ascites [Fatal]
